FAERS Safety Report 9123255 (Version 1)
Quarter: 2013Q1

REPORT INFORMATION
  Report Type: Spontaneous
  Country: US (occurrence: None)
  Receive Date: 20130131
  Receipt Date: 20130131
  Transmission Date: 20140127
  Serious: Yes (Other)
  Sender: FDA-Public Use
  Company Number: JPI-P-029074

PATIENT
  Age: 61 Year
  Sex: Female
  Weight: 57.15 kg

DRUGS (2)
  1. XYREM [Suspect]
     Indication: SLEEP DISORDER
     Dosage: 4.5 GM (2.25 GM, 2 IN 1 D), ORAL
     Route: 048
     Dates: start: 20120508, end: 2012
  2. UNSPECIFIED MEDICATION [Concomitant]

REACTIONS (13)
  - Arthritis [None]
  - Pain [None]
  - Accident [None]
  - Back pain [None]
  - Neck pain [None]
  - Osteoarthritis [None]
  - Sleep disorder [None]
  - Middle insomnia [None]
  - Feeling abnormal [None]
  - Dizziness [None]
  - Dizziness [None]
  - Nausea [None]
  - Drug withdrawal syndrome [None]
